FAERS Safety Report 25417847 (Version 1)
Quarter: 2025Q2

REPORT INFORMATION
  Report Type: Spontaneous
  Country: US (occurrence: None)
  Receive Date: 20250609
  Receipt Date: 20250609
  Transmission Date: 20250717
  Serious: Yes (Death)
  Sender: FDA-CTU
  Company Number: None

PATIENT
  Age: 71 Year
  Sex: Male
  Weight: 93.6 kg

DRUGS (1)
  1. LUPRON DEPOT [Suspect]
     Active Substance: LEUPROLIDE ACETATE
     Indication: Prostate cancer
     Dosage: OTHER FREQUENCY : EVERY 3 MONTHS;?
     Route: 030
     Dates: start: 20250409, end: 20250409

REACTIONS (5)
  - Back pain [None]
  - Arthralgia [None]
  - Pain in extremity [None]
  - Injection site reaction [None]
  - Necrotising fasciitis [None]

NARRATIVE: CASE EVENT DATE: 20250412
